FAERS Safety Report 8122315-6 (Version None)
Quarter: 2012Q1

REPORT INFORMATION
  Report Type: 
  Country: None (occurrence: None)
  Receive Date: 20120206
  Receipt Date: 20120201
  Transmission Date: 20120608
  Serious: Yes (Hospitalization, Disabling, Other)
  Sender: FDA-Public Use
  Company Number: 2010SP018678

PATIENT
  Age: 36 Year
  Sex: Female
  Weight: 85.2762 kg

DRUGS (1)
  1. NUVARING [Suspect]
     Indication: CONTRACEPTION
     Dosage: 1 DF;QM;VAG
     Route: 067
     Dates: start: 20070531, end: 20080325

REACTIONS (20)
  - WEIGHT INCREASED [None]
  - CHEST DISCOMFORT [None]
  - HEADACHE [None]
  - ARTHRALGIA [None]
  - ELECTROCARDIOGRAM ABNORMAL [None]
  - IMPAIRED WORK ABILITY [None]
  - INTERNATIONAL NORMALISED RATIO ABNORMAL [None]
  - PULMONARY EMBOLISM [None]
  - MUSCULOSKELETAL PAIN [None]
  - BRONCHOSPASM [None]
  - HYPERCHOLESTEROLAEMIA [None]
  - UNEVALUABLE EVENT [None]
  - DYSPNOEA [None]
  - PULMONARY CONGESTION [None]
  - CHRONIC SINUSITIS [None]
  - COUGH [None]
  - BRONCHIAL WALL THICKENING [None]
  - DEEP VEIN THROMBOSIS [None]
  - FATIGUE [None]
  - MALAISE [None]
